FAERS Safety Report 8042953-9 (Version None)
Quarter: 2012Q1

REPORT INFORMATION
  Report Type: 
  Country: None (occurrence: None)
  Receive Date: 20120112
  Receipt Date: 20120111
  Transmission Date: 20120608
  Serious: Yes (Other)
  Sender: FDA-Public Use
  Company Number: AU-ABBOTT-11P-008-0850267-00

PATIENT
  Sex: Male

DRUGS (1)
  1. HUMIRA [Suspect]
     Indication: PSORIASIS
     Dosage: 40 FORTNIGHTLY
     Dates: start: 20100802

REACTIONS (4)
  - HEPATIC NEOPLASM MALIGNANT [None]
  - HEPATITIS C [None]
  - HEPATIC LESION [None]
  - LIVER FUNCTION TEST ABNORMAL [None]
